FAERS Safety Report 19226092 (Version 1)
Quarter: 2021Q2

REPORT INFORMATION
  Report Type: Other
  Country: CH (occurrence: CH)
  Receive Date: 20210506
  Receipt Date: 20210506
  Transmission Date: 20210717
  Serious: Yes (Other)
  Sender: FDA-Public Use
  Company Number: CH-ROCHE-2825283

PATIENT
  Age: 82 Year
  Sex: Female
  Weight: 42 kg

DRUGS (14)
  1. XELODA [Suspect]
     Active Substance: CAPECITABINE
     Route: 048
     Dates: start: 20210330
  2. IBRANCE [Suspect]
     Active Substance: PALBOCICLIB
     Indication: BREAST CANCER METASTATIC
     Route: 048
     Dates: start: 20200504
  3. FASLODEX [Suspect]
     Active Substance: FULVESTRANT
     Indication: BREAST CANCER METASTATIC
     Route: 030
     Dates: start: 20200204, end: 20210308
  4. ALDACTONE [Concomitant]
     Active Substance: SPIRONOLACTONE
     Dosage: LONG TERM
     Route: 048
  5. CONDROSULF [Concomitant]
     Active Substance: SODIUM CHONDROITIN SULFATE
     Dosage: AS NECESSARY
     Route: 048
  6. CALCIMAGON D3 [Concomitant]
     Active Substance: CALCIUM\CHOLECALCIFEROL
     Dosage: LONG TERM
     Route: 048
  7. ZALDIAR [Concomitant]
     Active Substance: ACETAMINOPHEN\TRAMADOL HYDROCHLORIDE
     Dosage: AS NECESSARY
     Route: 048
  8. XELODA [Suspect]
     Active Substance: CAPECITABINE
     Indication: BREAST CANCER METASTATIC
     Route: 048
     Dates: start: 20210319, end: 20210324
  9. ALENDRON MEPHA [Concomitant]
     Active Substance: ALENDRONATE SODIUM
     Dosage: LONG TERM
     Route: 048
  10. ASPIRIN CARDIO [Concomitant]
     Active Substance: ASPIRIN
     Dosage: LONG TERM
     Route: 048
  11. IBRANCE [Suspect]
     Active Substance: PALBOCICLIB
     Route: 048
  12. VOLTAREN DOLO [Concomitant]
     Active Substance: DICLOFENAC
  13. IBRANCE [Suspect]
     Active Substance: PALBOCICLIB
     Route: 048
     Dates: end: 20210308
  14. DICETEL [Concomitant]
     Active Substance: PINAVERIUM BROMIDE
     Dosage: AS NECESSARY
     Route: 048

REACTIONS (1)
  - Colitis [Recovered/Resolved]

NARRATIVE: CASE EVENT DATE: 20210317
